FAERS Safety Report 24016477 (Version 2)
Quarter: 2025Q1

REPORT INFORMATION
  Report Type: Report from Study
  Country: CA (occurrence: CA)
  Receive Date: 20240626
  Receipt Date: 20250124
  Transmission Date: 20250409
  Serious: Yes (Other)
  Sender: GLAXOSMITHKLINE
  Company Number: CA-GLAXOSMITHKLINE-CA2023018899

PATIENT

DRUGS (1)
  1. MEPOLIZUMAB [Suspect]
     Active Substance: MEPOLIZUMAB
     Indication: Asthma
     Dosage: 100 MG, Q4W
     Route: 058
     Dates: start: 20190610

REACTIONS (4)
  - Colitis [Not Recovered/Not Resolved]
  - Asthma [Not Recovered/Not Resolved]
  - Environmental exposure [Recovering/Resolving]
  - Drug withdrawal syndrome [Unknown]
